FAERS Safety Report 14261292 (Version 1)
Quarter: 2017Q4

REPORT INFORMATION
  Report Type: Spontaneous
  Country: US (occurrence: US)
  Receive Date: 20171208
  Receipt Date: 20171208
  Transmission Date: 20180321
  Serious: No
  Sender: FDA-Public Use
  Company Number: US-SHIRE-US201721448

PATIENT
  Age: 66 Year
  Sex: Female

DRUGS (1)
  1. XIIDRA [Suspect]
     Active Substance: LIFITEGRAST
     Indication: PRODUCT USED FOR UNKNOWN INDICATION
     Route: 047

REACTIONS (8)
  - Dysgeusia [Unknown]
  - Abnormal sensation in eye [Unknown]
  - Instillation site lacrimation [Unknown]
  - Foreign body sensation in eyes [Unknown]
  - Oropharyngeal pain [Unknown]
  - Influenza like illness [Unknown]
  - Instillation site swelling [Unknown]
  - Instillation site pain [Unknown]

NARRATIVE: CASE EVENT DATE: 20170828
